FAERS Safety Report 10066304 (Version 1)
Quarter: 2014Q2

REPORT INFORMATION
  Report Type: Spontaneous
  Country: US (occurrence: US)
  Receive Date: 20140408
  Receipt Date: 20140408
  Transmission Date: 20141212
  Serious: No
  Sender: FDA-Public Use
  Company Number: US-TEVA-473772USA

PATIENT
  Sex: Male
  Weight: 79.45 kg

DRUGS (4)
  1. QNASL [Suspect]
     Indication: UPPER-AIRWAY COUGH SYNDROME
     Dates: start: 201303
  2. QNASL [Suspect]
     Indication: HYPERSENSITIVITY
  3. ADVAIR [Concomitant]
     Indication: ASTHMA
     Dosage: 100/50 1 PUFF QD
  4. CLARITIN [Concomitant]
     Indication: HYPERSENSITIVITY
     Dosage: 10 MILLIGRAM DAILY;
     Route: 048

REACTIONS (5)
  - Rhinalgia [Not Recovered/Not Resolved]
  - Rhinalgia [Not Recovered/Not Resolved]
  - Nasal dryness [Not Recovered/Not Resolved]
  - Nasal discomfort [Not Recovered/Not Resolved]
  - Epistaxis [Not Recovered/Not Resolved]
